FAERS Safety Report 6709168-5 (Version None)
Quarter: 2010Q2

REPORT INFORMATION
  Report Type: 
  Country: None (occurrence: None)
  Receive Date: 20100504
  Receipt Date: 20100420
  Transmission Date: 20101027
  Serious: Yes (Hospitalization)
  Sender: FDA-Public Use
  Company Number: NL-MEDIMMUNE-MEDI-0011147

PATIENT
  Sex: Female

DRUGS (6)
  1. SYNAGIS [Suspect]
     Route: 030
     Dates: start: 20090924, end: 20100319
  2. SYNAGIS [Suspect]
     Route: 030
     Dates: start: 20100412
  3. BACTRIM [Concomitant]
  4. HYROCHLOROTHIAZIDE [Concomitant]
  5. SPIRONOLACTONE [Concomitant]
  6. TUBE FEEDING [Concomitant]

REACTIONS (3)
  - AGGRESSION [None]
  - CRYING [None]
  - MALAISE [None]
